FAERS Safety Report 5500074-0 (Version None)
Quarter: 2007Q4

REPORT INFORMATION
  Report Type: 
  Country: None (occurrence: None)
  Receive Date: 20071024
  Receipt Date: 20071009
  Transmission Date: 20080405
  Serious: Yes (Death, Hospitalization, Disabling)
  Sender: FDA-Public Use
  Company Number: 100#08#2007-04074

PATIENT
  Age: 14 Year
  Sex: Female

DRUGS (3)
  1. METHOTREXATE [Suspect]
     Indication: ACUTE LYMPHOCYTIC LEUKAEMIA
     Dosage: SEE IMAGE
  2. CYTARABINE [Suspect]
     Indication: ACUTE LYMPHOCYTIC LEUKAEMIA
     Dosage: 30 MG (TWO STANDARD IT INJECTIONS), INTRATHECAL
     Route: 037
  3. PREDNISOLONE [Concomitant]

REACTIONS (13)
  - ALANINE AMINOTRANSFERASE INCREASED [None]
  - ASPARTATE AMINOTRANSFERASE INCREASED [None]
  - BLOOD BRAIN BARRIER DEFECT [None]
  - BLOOD IMMUNOGLOBULIN A DECREASED [None]
  - BONE MARROW FAILURE [None]
  - GUILLAIN-BARRE SYNDROME [None]
  - LEUKAEMIA RECURRENT [None]
  - NEUROGENIC BLADDER [None]
  - NEUROTOXICITY [None]
  - NO THERAPEUTIC RESPONSE [None]
  - OSTEONECROSIS [None]
  - PARAPLEGIA [None]
  - PROTEIN TOTAL DECREASED [None]
